FAERS Safety Report 8171949-1 (Version None)
Quarter: 2012Q1

REPORT INFORMATION
  Report Type: 
  Country: None (occurrence: None)
  Receive Date: 20120228
  Receipt Date: 20120222
  Transmission Date: 20120608
  Serious: Yes (Death, Hospitalization, Other)
  Sender: FDA-Public Use
  Company Number: GB-ROCHE-1043211

PATIENT
  Sex: Male

DRUGS (3)
  1. PERINDOPRIL [Concomitant]
  2. ASPIRIN [Concomitant]
  3. LUCENTIS [Suspect]
     Indication: PRODUCT USED FOR UNKNOWN INDICATION
     Route: 050

REACTIONS (2)
  - MULTIPLE MYELOMA [None]
  - LOWER RESPIRATORY TRACT INFECTION [None]
